FAERS Safety Report 6274922-3 (Version None)
Quarter: 2009Q3

REPORT INFORMATION
  Report Type: 
  Country: None (occurrence: None)
  Receive Date: 20090717
  Receipt Date: 20090710
  Transmission Date: 20100115
  Serious: Yes (Other)
  Sender: FDA-Public Use
  Company Number: 323712

PATIENT
  Age: 16 Year
  Sex: Female

DRUGS (12)
  1. CYTARABINE [Suspect]
     Indication: B PRECURSOR TYPE ACUTE LEUKAEMIA
  2. METHOTREXATE [Suspect]
     Indication: B PRECURSOR TYPE ACUTE LEUKAEMIA
  3. VINCRISTINE [Suspect]
     Indication: B PRECURSOR TYPE ACUTE LEUKAEMIA
  4. ELSPAR [Suspect]
     Indication: B PRECURSOR TYPE ACUTE LEUKAEMIA
  5. CYCLOPHOSPHAMIDE [Suspect]
     Indication: B PRECURSOR TYPE ACUTE LEUKAEMIA
  6. DAUNORUBICIN HCL [Suspect]
     Indication: B PRECURSOR TYPE ACUTE LEUKAEMIA
  7. DEXAMETHASONE [Suspect]
     Indication: B PRECURSOR TYPE ACUTE LEUKAEMIA
     Dosage: 236 MG/M2, 252 MG/M2
  8. ITRACONAZOLE [Suspect]
     Indication: ASPERGILLOSIS
  9. MERCAPTOPURINE [Suspect]
     Indication: B PRECURSOR TYPE ACUTE LEUKAEMIA
  10. PREDNISONE TAB [Suspect]
     Indication: B PRECURSOR TYPE ACUTE LEUKAEMIA
     Dosage: 1837 MG/M2,
  11. AMPHOTERICIN B [Concomitant]
  12. CIPROFLOXACIN [Concomitant]

REACTIONS (9)
  - FATIGUE [None]
  - HEPATOSPLENOMEGALY [None]
  - LYMPHADENOPATHY [None]
  - NEUROTOXICITY [None]
  - OSTEOCHONDROSIS [None]
  - OSTEONECROSIS [None]
  - PALLOR [None]
  - PANCYTOPENIA [None]
  - PYREXIA [None]
